FAERS Safety Report 8387033-8 (Version None)
Quarter: 2012Q2

REPORT INFORMATION
  Report Type: 
  Country: None (occurrence: None)
  Receive Date: 20120525
  Receipt Date: 20120522
  Transmission Date: 20120825
  Serious: Yes (Hospitalization, Other)
  Sender: FDA-Public Use
  Company Number: US-ACTELION-A-NJ2011-57345

PATIENT

DRUGS (5)
  1. REVATIO [Concomitant]
  2. VENTAVIS [Suspect]
     Indication: PULMONARY ARTERIAL HYPERTENSION
     Dosage: UNK
     Route: 055
     Dates: start: 20111027, end: 20120101
  3. TRACLEER [Suspect]
     Indication: PULMONARY ARTERIAL HYPERTENSION
     Dosage: UNK
     Route: 048
     Dates: start: 20110418
  4. COUMADIN [Concomitant]
  5. PLAVIX [Concomitant]

REACTIONS (9)
  - SYNCOPE [None]
  - RETCHING [None]
  - DIZZINESS [None]
  - HEART RATE DECREASED [None]
  - LOSS OF CONSCIOUSNESS [None]
  - CONTUSION [None]
  - FATIGUE [None]
  - EPISTAXIS [None]
  - PRESYNCOPE [None]
